FAERS Safety Report 14826356 (Version 1)
Quarter: 2018Q2

REPORT INFORMATION
  Report Type: Spontaneous
  Country: US (occurrence: US)
  Receive Date: 20180404
  Receipt Date: 20180404
  Transmission Date: 20180711
  Serious: No
  Sender: FDA-Public Use
  Company Number: None

PATIENT
  Age: 39 Year
  Sex: Female

DRUGS (1)
  1. MATULANE [Suspect]
     Active Substance: PROCARBAZINE HYDROCHLORIDE
     Indication: BRAIN NEOPLASM MALIGNANT
     Route: 048
     Dates: start: 20180226, end: 20180303

REACTIONS (4)
  - Paraesthesia oral [None]
  - Dizziness [None]
  - Pain in jaw [None]
  - Odynophagia [None]

NARRATIVE: CASE EVENT DATE: 20180226
